FAERS Safety Report 5647125-0 (Version None)
Quarter: 2008Q1

REPORT INFORMATION
  Report Type: 
  Country: None (occurrence: None)
  Receive Date: 20080228
  Receipt Date: 20080215
  Transmission Date: 20080703
  Serious: Yes (Other)
  Sender: FDA-Public Use
  Company Number: 2008S1000035

PATIENT
  Age: 5 Day
  Sex: Male
  Weight: 0.88 kg

DRUGS (16)
  1. NITRIC OXIDE [Suspect]
     Indication: LUNG DISORDER
     Dosage: 5 PPM;CONT;INH
     Route: 055
     Dates: start: 20080209
  2. NITRIC OXIDE [Suspect]
     Indication: PROPHYLAXIS
     Dosage: 5 PPM;CONT;INH
     Route: 055
     Dates: start: 20080209
  3. HYDROCORTISONE [Concomitant]
  4. NORADRENALINE [Concomitant]
  5. FENTANYL CITRATE [Concomitant]
  6. SEROALBUMIN [Concomitant]
  7. BLOOD TRANSFUSION [Concomitant]
  8. AUXILIARY PRODUCTS [Concomitant]
  9. CEFOTAXIME [Concomitant]
  10. GENTAMICIN [Concomitant]
  11. PHENOBARBITAL TAB [Concomitant]
  12. MIDAZOLAM HCL [Concomitant]
  13. DOPAMINE HCL [Concomitant]
  14. DOBUTAMINE [Concomitant]
  15. INSULIN [Concomitant]
  16. SODIUM BICARBONATE [Concomitant]

REACTIONS (2)
  - CEREBRAL HAEMORRHAGE NEONATAL [None]
  - NEONATAL HYPOTENSION [None]
